FAERS Safety Report 9509941 (Version 1)
Quarter: 2013Q3

REPORT INFORMATION
  Report Type: Spontaneous
  Country: US (occurrence: US)
  Receive Date: 20130909
  Receipt Date: 20130909
  Transmission Date: 20140515
  Serious: No
  Sender: FDA-Public Use
  Company Number: US-BRISTOL-MYERS SQUIBB COMPANY-18794321

PATIENT
  Age: 28 Year
  Sex: Female

DRUGS (4)
  1. ABILIFY [Suspect]
     Indication: DEPRESSION
     Dates: start: 20130327, end: 20130407
  2. ABILIFY [Suspect]
     Indication: MOOD SWINGS
     Dates: start: 20130327, end: 20130407
  3. ABILIFY [Suspect]
     Indication: SUICIDAL IDEATION
     Dates: start: 20130327, end: 20130407
  4. EFFEXOR [Concomitant]

REACTIONS (4)
  - Tremor [Recovering/Resolving]
  - Hyperhidrosis [Recovering/Resolving]
  - Muscle rigidity [Recovering/Resolving]
  - Pain [Recovering/Resolving]
